FAERS Safety Report 6138772-0 (Version None)
Quarter: 2009Q1

REPORT INFORMATION
  Report Type: 
  Country: None (occurrence: None)
  Receive Date: 20090327
  Receipt Date: 20090312
  Transmission Date: 20090719
  Serious: Yes (Hospitalization)
  Sender: FDA-Public Use
  Company Number: PAR_02894_2009

PATIENT
  Sex: Female

DRUGS (26)
  1. IBUPROFEN [Suspect]
     Indication: DRUG USE FOR UNKNOWN INDICATION
     Dosage: (1200 MG)
     Dates: start: 20090221, end: 20090226
  2. IBUPROFEN [Suspect]
     Indication: DRUG USE FOR UNKNOWN INDICATION
     Dosage: (600 MG)
     Dates: start: 20090220, end: 20090220
  3. RIVAROXABAN [Suspect]
     Indication: THROMBOSIS PROPHYLAXIS
     Dosage: (10 MG ORAL) ; (10 MG ORAL)
     Route: 048
     Dates: start: 20090223, end: 20090223
  4. RIVAROXABAN [Suspect]
     Indication: THROMBOSIS PROPHYLAXIS
     Dosage: (10 MG ORAL) ; (10 MG ORAL)
     Route: 048
     Dates: start: 20090225
  5. PROPOFOL [Concomitant]
  6. ATRACURIUM [Concomitant]
  7. FENTANYL [Concomitant]
  8. XYLONEST [Concomitant]
  9. NAROPIN [Concomitant]
  10. CEFAZOLIN AND DEXTROSE [Concomitant]
  11. AKRINOR [Concomitant]
  12. NOVALGIN [Concomitant]
  13. JONOSTERIL [Concomitant]
  14. DIPIDOLOR [Concomitant]
  15. VOMEX [Concomitant]
  16. CLEXANE [Concomitant]
  17. ATACAND OR BLOPRESS [Concomitant]
  18. REMERGIL [Concomitant]
  19. OXYGESIC [Concomitant]
  20. RED BLOOD CELLS [Concomitant]
  21. COTRIM [Concomitant]
  22. PANTOZOL [Concomitant]
  23. OXAZEPAM [Concomitant]
  24. GODAMED [Concomitant]
  25. RINGER'S [Concomitant]
  26. BETAISODONA [Concomitant]

REACTIONS (7)
  - BLOOD SODIUM DECREASED [None]
  - BLOODY DISCHARGE [None]
  - HAEMATOCRIT DECREASED [None]
  - HAEMOGLOBIN DECREASED [None]
  - POST PROCEDURAL DRAINAGE [None]
  - RED BLOOD CELL COUNT DECREASED [None]
  - SECRETION DISCHARGE [None]
